FAERS Safety Report 21304887 (Version 1)
Quarter: 2022Q3

REPORT INFORMATION
  Report Type: Spontaneous
  Country: US (occurrence: US)
  Receive Date: 20220907
  Receipt Date: 20220907
  Transmission Date: 20221027
  Serious: No
  Sender: FDA-Public Use
  Company Number: US-3M-2022-US-009631

PATIENT
  Age: 12 Year
  Sex: Female

DRUGS (1)
  1. PERIDEX [Suspect]
     Active Substance: CHLORHEXIDINE GLUCONATE
     Indication: Product used for unknown indication
     Dosage: USED ONCE, SWISHED AND DID NOT SWALLOW
     Route: 048

REACTIONS (3)
  - Poisoning [Unknown]
  - Intentional product misuse [Unknown]
  - Product use issue [Unknown]
